FAERS Safety Report 9766817 (Version 1)
Quarter: 2013Q4

REPORT INFORMATION
  Report Type: Spontaneous
  Country: US (occurrence: US)
  Receive Date: 20131217
  Receipt Date: 20131217
  Transmission Date: 20140711
  Serious: No
  Sender: FDA-Public Use
  Company Number: US-GLAXOSMITHKLINE-A1033726A

PATIENT
  Age: 75 Year
  Sex: Female

DRUGS (8)
  1. VOTRIENT [Suspect]
     Indication: RENAL CANCER
     Dosage: 400MG PER DAY
     Route: 048
     Dates: start: 20130703
  2. TARCEVA [Suspect]
     Indication: LUNG NEOPLASM MALIGNANT
     Dosage: 150MG PER DAY
     Route: 048
     Dates: start: 20130709
  3. ATENOLOL [Concomitant]
  4. HYDROXYUREA [Concomitant]
  5. ZINC [Concomitant]
  6. VITAMIN D3 [Concomitant]
  7. DIETARY SUPPLEMENT [Concomitant]
  8. COUGH SYRUP [Concomitant]

REACTIONS (4)
  - Epistaxis [Unknown]
  - Epistaxis [Unknown]
  - Decreased appetite [Unknown]
  - Somnolence [Unknown]
